FAERS Safety Report 4645929-4 (Version None)
Quarter: 2005Q2

REPORT INFORMATION
  Report Type: 
  Country: None (occurrence: None)
  Receive Date: 20050427
  Receipt Date: 20050415
  Transmission Date: 20051028
  Serious: Yes (Hospitalization, Other)
  Sender: FDA-Public Use
  Company Number: US-AMGEN-US127152

PATIENT
  Sex: Male
  Weight: 63.6 kg

DRUGS (4)
  1. PROCRIT [Suspect]
     Indication: ANAEMIA OF MALIGNANT DISEASE
     Route: 058
     Dates: start: 20030401, end: 20050401
  2. SYNTHROID [Concomitant]
  3. PREVACID [Concomitant]
  4. TESTOSTERONE [Concomitant]

REACTIONS (6)
  - APLASIA PURE RED CELL [None]
  - ASTHENIA [None]
  - CHRONIC LYMPHOCYTIC LEUKAEMIA TRANSFORMATION [None]
  - COUGH [None]
  - PYREXIA [None]
  - SEPSIS [None]
